FAERS Safety Report 12614720 (Version 3)
Quarter: 2016Q3

REPORT INFORMATION
  Report Type: Spontaneous
  Country: GB (occurrence: GB)
  Receive Date: 20160802
  Receipt Date: 20160815
  Transmission Date: 20161109
  Serious: Yes (Death)
  Sender: FDA-Public Use
  Company Number: GB-SA-2016SA139152

PATIENT
  Age: 94 Year
  Sex: Female

DRUGS (6)
  1. CLEXANE [Suspect]
     Active Substance: ENOXAPARIN SODIUM
     Indication: THROMBOSIS PROPHYLAXIS
     Dosage: START DATE 11 NOV?STOP DATE 14 NOV
     Route: 051
     Dates: start: 20151111, end: 20151114
  2. LORAZEPAM. [Concomitant]
     Active Substance: LORAZEPAM
     Indication: ANXIETY
     Dosage: 2MG NOCTE (NIGHT)?START DATE LONG TERM USER GREATER THAN 30 YEARS
     Route: 065
  3. FUROSEMIDE. [Concomitant]
     Active Substance: FUROSEMIDE
     Indication: RENAL DISORDER
     Dosage: ABOUT 5 YEARS START DATE
     Route: 065
  4. LORAZEPAM. [Concomitant]
     Active Substance: LORAZEPAM
     Indication: ANXIETY
     Dosage: 1MG MANE (MORNING)?START DATE LONG TERM USER GREATER THAN 30 YEARS
     Route: 065
  5. COCODAMOL [Concomitant]
     Active Substance: ACETAMINOPHEN\CODEINE PHOSPHATE
     Indication: OSTEOARTHRITIS
     Route: 065
  6. NITRAZEPAM [Concomitant]
     Active Substance: NITRAZEPAM
     Indication: SLEEP DISORDER
     Dosage: START DATE LONG TERM?USER GREATER THAN 30 YEARS
     Route: 065

REACTIONS (4)
  - Pulmonary embolism [Fatal]
  - Contraindicated product administered [Fatal]
  - Gastric haemorrhage [Fatal]
  - Melaena [Fatal]
